FAERS Safety Report 8757475 (Version 3)
Quarter: 2014Q2

REPORT INFORMATION
  Report Type: Spontaneous
  Country: US (occurrence: US)
  Receive Date: 20120828
  Receipt Date: 20140501
  Transmission Date: 20141212
  Serious: Yes (Hospitalization)
  Sender: FDA-Public Use
  Company Number: US-BAYER-2012-087396

PATIENT
  Age: 45 Year
  Sex: Female
  Weight: 127 kg

DRUGS (4)
  1. YASMIN [Suspect]
     Dosage: UNK
     Dates: start: 200311
  2. TRIMOX [AMOXICILLIN TRIHYDRATE] [Concomitant]
     Dosage: 500 MG, TID FOR 10 DAYS
     Route: 048
  3. INDAPAMIDE [Concomitant]
     Dosage: 1.25 MG, ONE EVERY DAY
     Route: 048
     Dates: start: 20030703, end: 20031011
  4. WELLBUTRIN [Concomitant]

REACTIONS (8)
  - Thrombosis [None]
  - Pulmonary embolism [None]
  - Deep vein thrombosis [None]
  - Injury [None]
  - Pain [None]
  - Emotional distress [None]
  - Anxiety [None]
  - Psychological trauma [None]
